FAERS Safety Report 20501559 (Version 1)
Quarter: 2022Q1

REPORT INFORMATION
  Report Type: Spontaneous
  Country: US (occurrence: US)
  Receive Date: 20220222
  Receipt Date: 20220222
  Transmission Date: 20220423
  Serious: No
  Sender: FDA-Public Use
  Company Number: US-PFIZER INC-202200291684

PATIENT
  Age: 68 Year
  Sex: Female
  Weight: 97.98 kg

DRUGS (2)
  1. PAXLOVID [Suspect]
     Active Substance: NIRMATRELVIR\RITONAVIR
     Indication: COVID-19
     Dosage: 3 PILLS IN THE MORNING AND 3 PILLS IN THE EVENING FOR 5 DAYS
     Dates: start: 20220215
  2. METOPROLOL [Concomitant]
     Active Substance: METOPROLOL
     Indication: Hypertension
     Dosage: UNK

REACTIONS (6)
  - Diarrhoea [Unknown]
  - Dysgeusia [Unknown]
  - Hyperhidrosis [Unknown]
  - Feeling hot [Unknown]
  - Malaise [Unknown]
  - Poor quality sleep [Unknown]

NARRATIVE: CASE EVENT DATE: 20220215
